FAERS Safety Report 5363774-1 (Version None)
Quarter: 2007Q2

REPORT INFORMATION
  Report Type: 
  Country: None (occurrence: None)
  Receive Date: 20070530
  Receipt Date: 20070106
  Transmission Date: 20071010
  Serious: No
  Sender: FDA-Public Use
  Company Number: 2007PV027916

PATIENT
  Age: 60 Year
  Sex: Male
  Weight: 88.4514 kg

DRUGS (4)
  1. BYETTA [Suspect]
     Indication: DIABETES MELLITUS NON-INSULIN-DEPENDENT
     Dosage: 5 MCG;BID;SC
     Route: 058
     Dates: start: 20061202
  2. GLYBURIDE [Concomitant]
  3. METFORMIN HCL [Concomitant]
  4. ZOLOFT [Concomitant]

REACTIONS (6)
  - AGITATION [None]
  - ANGER [None]
  - DRUG EFFECT DECREASED [None]
  - FEELING JITTERY [None]
  - TREMOR [None]
  - WEIGHT DECREASED [None]
